APPROVED DRUG PRODUCT: FLUOROURACIL
Active Ingredient: FLUOROURACIL
Strength: 5%
Dosage Form/Route: SOLUTION;TOPICAL
Application: A076526 | Product #002 | TE Code: AT
Applicant: TARO PHARMACEUTICAL INDUSTRIES LTD
Approved: Nov 5, 2003 | RLD: No | RS: Yes | Type: RX